FAERS Safety Report 7737714-1 (Version None)
Quarter: 2011Q3

REPORT INFORMATION
  Report Type: 
  Country: None (occurrence: None)
  Receive Date: 20110908
  Receipt Date: 20110825
  Transmission Date: 20111222
  Serious: Yes (Hospitalization)
  Sender: FDA-Public Use
  Company Number: JP-SPECTRUM PHARMACEUTICALS, INC.-11-Z-JP-00142

PATIENT

DRUGS (3)
  1. ZEVALIN [Suspect]
     Indication: LYMPHOMA
     Dosage: UNK, QD
     Route: 042
     Dates: start: 20110222
  2. ZEVALIN [Suspect]
     Dosage: UNK, QD
     Route: 042
     Dates: start: 20110215
  3. RITUXIMAB [Suspect]
     Indication: LYMPHOMA

REACTIONS (5)
  - WHITE BLOOD CELL COUNT DECREASED [None]
  - PLATELET COUNT DECREASED [None]
  - HAEMOGLOBIN DECREASED [None]
  - NEUTROPHIL COUNT DECREASED [None]
  - HEPATIC ENZYME INCREASED [None]
